FAERS Safety Report 9540450 (Version 1)
Quarter: 2013Q3

REPORT INFORMATION
  Report Type: Spontaneous
  Country: IT (occurrence: IT)
  Receive Date: 20130920
  Receipt Date: 20130920
  Transmission Date: 20140515
  Serious: Yes (Hospitalization)
  Sender: FDA-Public Use
  Company Number: IT-GLAXOSMITHKLINE-B0924079A

PATIENT
  Age: 83 Year
  Sex: Male

DRUGS (8)
  1. SELEPARINA [Suspect]
     Indication: MYOCARDIAL ISCHAEMIA
     Route: 065
     Dates: start: 20130401, end: 20130605
  2. ARIXTRA [Suspect]
     Indication: MYOCARDIAL ISCHAEMIA
     Route: 065
     Dates: start: 20130401, end: 20130605
  3. TIKLID [Suspect]
     Indication: MYOCARDIAL ISCHAEMIA
     Dosage: 250MG TWICE PER DAY
     Route: 065
  4. MEMANTINE HYDROCHLORIDE [Concomitant]
  5. RAMIPRIL [Concomitant]
     Dosage: 5MGD PER DAY
  6. TAMSULOSIN HYDROCHLORIDE [Concomitant]
  7. HALOPERIDOL [Concomitant]
  8. TRAZODONE [Concomitant]

REACTIONS (2)
  - Gastrointestinal haemorrhage [Unknown]
  - Haematemesis [Unknown]
